FAERS Safety Report 9073759 (Version 1)
Quarter: 2013Q1

REPORT INFORMATION
  Report Type: Report from Study
  Country: US (occurrence: US)
  Receive Date: 20130129
  Receipt Date: 20130129
  Transmission Date: 20140127
  Serious: Yes (Other)
  Sender: FDA-Public Use
  Company Number: US-ABBOTT-12P-163-0905277-00

PATIENT
  Age: 49 None
  Sex: Female
  Weight: 66.28 kg

DRUGS (20)
  1. HUMIRA 40 MG/0.8 ML PEN [Suspect]
     Indication: RHEUMATOID ARTHRITIS
     Dates: start: 201103, end: 201112
  2. HUMIRA 40 MG/0.8 ML PEN [Suspect]
     Dates: start: 201203
  3. HUMIRA 40 MG/0.8 ML PEN [Suspect]
     Dates: start: 201203
  4. TOPAMAX [Suspect]
     Indication: HEADACHE
  5. TOPAMAX [Suspect]
  6. ALEVE [Concomitant]
     Indication: PRODUCT USED FOR UNKNOWN INDICATION
  7. ATORVASTATIN [Concomitant]
     Indication: PRODUCT USED FOR UNKNOWN INDICATION
  8. ESTRADIOL [Concomitant]
     Indication: HORMONE REPLACEMENT THERAPY
  9. FOLIC ACID [Concomitant]
     Indication: PRODUCT USED FOR UNKNOWN INDICATION
  10. PERCOCET [Concomitant]
     Indication: PAIN
  11. PREDNISONE [Concomitant]
     Indication: RHEUMATOID ARTHRITIS
  12. TRAMADOL [Concomitant]
     Indication: PRODUCT USED FOR UNKNOWN INDICATION
  13. TRAZADONE [Concomitant]
     Indication: INSOMNIA
  14. VITAMINS [Concomitant]
     Indication: VITAMIN SUPPLEMENTATION
  15. FENTANYL PATCH [Concomitant]
     Indication: PAIN
  16. MORPHINE [Concomitant]
     Indication: PAIN
  17. GENERIC LIPITOR [Concomitant]
     Indication: BLOOD CHOLESTEROL INCREASED
  18. VITAMIN D [Concomitant]
     Indication: VITAMIN SUPPLEMENTATION
  19. VITAMIN E [Concomitant]
     Indication: VITAMIN SUPPLEMENTATION
  20. VITAMIN B12 [Concomitant]
     Indication: VITAMIN SUPPLEMENTATION

REACTIONS (9)
  - Demyelination [Not Recovered/Not Resolved]
  - Pleurisy [Recovered/Resolved]
  - Chest pain [Recovering/Resolving]
  - Headache [Not Recovered/Not Resolved]
  - Pain [Recovered/Resolved]
  - Dyspnoea [Recovered/Resolved]
  - Vision blurred [Not Recovered/Not Resolved]
  - Dysarthria [Recovered/Resolved]
  - Loss of consciousness [Recovered/Resolved]
